FAERS Safety Report 6268592-8 (Version None)
Quarter: 2009Q3

REPORT INFORMATION
  Report Type: 
  Country: None (occurrence: None)
  Receive Date: 20090715
  Receipt Date: 20090529
  Transmission Date: 20100115
  Serious: Yes (Other)
  Sender: FDA-Public Use
  Company Number: BR-JNJFOC-20090702031

PATIENT
  Age: 49 Year
  Sex: Male

DRUGS (2)
  1. ITRACONAZOLE [Suspect]
     Indication: PHAEHYPHOMYCOSIS
     Route: 065
  2. CYCLOSPORINE [Interacting]
     Indication: PHAEHYPHOMYCOSIS
     Route: 065

REACTIONS (2)
  - DRUG INTERACTION [None]
  - HYPERTENSIVE CRISIS [None]
